FAERS Safety Report 15362732 (Version 1)
Quarter: 2018Q3

REPORT INFORMATION
  Report Type: Spontaneous
  Country: NZ (occurrence: NZ)
  Receive Date: 20180907
  Receipt Date: 20180907
  Transmission Date: 20181010
  Serious: Yes (Other)
  Sender: FDA-Public Use
  Company Number: NZ-MYLANLABS-2018M1065143

PATIENT
  Sex: Female

DRUGS (1)
  1. ENLAFAX XR [Suspect]
     Active Substance: VENLAFAXINE HYDROCHLORIDE
     Indication: PRODUCT USED FOR UNKNOWN INDICATION
     Dosage: UNK

REACTIONS (6)
  - Depressed mood [Unknown]
  - Product substitution issue [Unknown]
  - Altered state of consciousness [Unknown]
  - Anxiety [Unknown]
  - Road traffic accident [Unknown]
  - Anger [Unknown]
